FAERS Safety Report 13491863 (Version 6)
Quarter: 2017Q3

REPORT INFORMATION
  Report Type: Spontaneous
  Country: US (occurrence: US)
  Receive Date: 20170427
  Receipt Date: 20170908
  Transmission Date: 20171127
  Serious: Yes (Hospitalization, Disabling)
  Sender: FDA-Public Use
  Company Number: US-ELI_LILLY_AND_COMPANY-US201704008577

PATIENT
  Age: 56 Year
  Sex: Male
  Weight: 128.2 kg

DRUGS (7)
  1. METFORMIN [Concomitant]
     Active Substance: METFORMIN HYDROCHLORIDE
     Indication: DIABETES MELLITUS
     Dosage: 500 MG, BID
     Route: 065
  2. LISINOPRIL. [Concomitant]
     Active Substance: LISINOPRIL
     Indication: HYPERTENSION
     Dosage: 30 MG, DAILY
     Route: 065
  3. LIPITOR [Concomitant]
     Active Substance: ATORVASTATIN CALCIUM
     Indication: HYPERCHOLESTEROLAEMIA
     Dosage: 20 MG, DAILY
     Route: 065
  4. ADVAIR HFA [Concomitant]
     Active Substance: FLUTICASONE PROPIONATE\SALMETEROL XINAFOATE
     Indication: PRODUCT USED FOR UNKNOWN INDICATION
     Dosage: 250/50 MCG, DAILY
     Route: 065
  5. SINGULAIR [Concomitant]
     Active Substance: MONTELUKAST SODIUM
     Indication: PRODUCT USED FOR UNKNOWN INDICATION
  6. CLARITIN [Concomitant]
     Active Substance: LORATADINE
     Indication: DIABETES MELLITUS
     Dosage: 10 MG, DAILY
     Route: 065
  7. TALTZ [Suspect]
     Active Substance: IXEKIZUMAB
     Indication: PSORIASIS
     Dosage: 160 MG, SINGLE
     Route: 058
     Dates: start: 20170406, end: 20170407

REACTIONS (24)
  - Pruritus [Not Recovered/Not Resolved]
  - Injection site pruritus [Recovering/Resolving]
  - Pain [Recovered/Resolved with Sequelae]
  - Myalgia [Recovered/Resolved]
  - Autoimmune disorder [Not Recovered/Not Resolved]
  - Injection site warmth [Recovering/Resolving]
  - Drug hypersensitivity [Not Recovered/Not Resolved]
  - Peripheral swelling [Unknown]
  - Musculoskeletal pain [Not Recovered/Not Resolved]
  - Erythema [Not Recovered/Not Resolved]
  - Hypoaesthesia [Recovered/Resolved with Sequelae]
  - Rash [Recovered/Resolved]
  - Fine motor skill dysfunction [Recovering/Resolving]
  - Headache [Recovered/Resolved]
  - Urticaria [Not Recovered/Not Resolved]
  - Injection site erythema [Recovering/Resolving]
  - Grip strength decreased [Recovering/Resolving]
  - Skin warm [Not Recovered/Not Resolved]
  - Pain in extremity [Not Recovered/Not Resolved]
  - Coordination abnormal [Unknown]
  - Mobility decreased [Recovered/Resolved with Sequelae]
  - Antibody test abnormal [Not Recovered/Not Resolved]
  - Injection site swelling [Recovering/Resolving]
  - Injection site reaction [Recovering/Resolving]

NARRATIVE: CASE EVENT DATE: 20170407
